FAERS Safety Report 6732966-9 (Version None)
Quarter: 2010Q2

REPORT INFORMATION
  Report Type: 
  Country: None (occurrence: None)
  Receive Date: 20100517
  Receipt Date: 20100505
  Transmission Date: 20101027
  Serious: Yes (Other)
  Sender: FDA-Public Use
  Company Number: US-1181735

PATIENT
  Age: 72 Year
  Sex: Female
  Weight: 52.1637 kg

DRUGS (2)
  1. PILOCARPINE HCL [Suspect]
     Indication: GLAUCOMA
     Dosage: 4 GTT OU  OPHTHALMIC
     Route: 047
     Dates: start: 20100420
  2. ALPHAGAN [Concomitant]

REACTIONS (2)
  - CATARACT [None]
  - VISUAL IMPAIRMENT [None]
